FAERS Safety Report 6039472-8 (Version None)
Quarter: 2009Q1

REPORT INFORMATION
  Report Type: 
  Country: None (occurrence: None)
  Receive Date: 20090114
  Receipt Date: 20090106
  Transmission Date: 20090719
  Serious: Yes (Death, Hospitalization)
  Sender: FDA-Public Use
  Company Number: 2008US003273

PATIENT
  Age: 46 Year
  Sex: Male

DRUGS (4)
  1. PROGRAF [Suspect]
     Indication: STEM CELL TRANSPLANT
     Dates: start: 20080912
  2. BUSULFAN (BUSULFAN) [Concomitant]
  3. CYTOXAN [Concomitant]
  4. ATG (ANTITHYMOCYTEIMMUNOGLOBULIN) [Concomitant]

REACTIONS (17)
  - ACUTE MYELOID LEUKAEMIA [None]
  - BK VIRUS INFECTION [None]
  - CONFUSIONAL STATE [None]
  - DYSPHAGIA [None]
  - EXTRAMEDULLARY HAEMOPOIESIS [None]
  - GASTROINTESTINAL HAEMORRHAGE [None]
  - HEPATIC FUNCTION ABNORMAL [None]
  - MUCOSAL INFLAMMATION [None]
  - MULTI-ORGAN FAILURE [None]
  - OPPORTUNISTIC INFECTION [None]
  - PANCYTOPENIA [None]
  - PENILE ULCERATION [None]
  - PLEURAL EFFUSION [None]
  - PNEUMONIA BACTERIAL [None]
  - RENAL FAILURE [None]
  - SPUTUM CULTURE POSITIVE [None]
  - URINARY TRACT INFECTION FUNGAL [None]
